FAERS Safety Report 10750633 (Version 1)
Quarter: 2015Q1

REPORT INFORMATION
  Report Type: Spontaneous
  Country: US (occurrence: None)
  Receive Date: 20150128
  Receipt Date: 20150128
  Transmission Date: 20150721
  Serious: Yes (Other)
  Sender: FDA-Public Use
  Company Number: A14-064-H

PATIENT
  Age: 50 Year
  Sex: Female

DRUGS (2)
  1. DMMX, C, D, M, RW [Suspect]
     Active Substance: ALLERGENIC EXTRACTS
     Indication: IMMUNE TOLERANCE INDUCTION
     Dates: start: 20141030
  2. TMX, CED, GR MX, WD MX [Suspect]
     Active Substance: ALLERGENIC EXTRACTS
     Indication: IMMUNE TOLERANCE INDUCTION
     Dates: start: 20141030

REACTIONS (7)
  - Ocular hyperaemia [None]
  - Oral pruritus [None]
  - Dysphonia [None]
  - Injection site reaction [None]
  - Sneezing [None]
  - Lacrimation increased [None]
  - Periorbital oedema [None]

NARRATIVE: CASE EVENT DATE: 20141030
